FAERS Safety Report 4834310-0 (Version None)
Quarter: 2005Q4

REPORT INFORMATION
  Report Type: 
  Country: None (occurrence: None)
  Receive Date: 20051122
  Receipt Date: 20051110
  Transmission Date: 20060501
  Serious: Yes (Other)
  Sender: FDA-Public Use
  Company Number: CA-ROCHE-424602

PATIENT
  Sex: Female
  Weight: 84 kg

DRUGS (5)
  1. CLONAZEPAM [Suspect]
     Indication: DRUG USE FOR UNKNOWN INDICATION
     Route: 065
  2. LIPITOR [Concomitant]
  3. ALTACE [Concomitant]
  4. ASPIRIN [Concomitant]
     Dosage: FORM REPORTED AS CTB.
  5. SENOKOT [Concomitant]

REACTIONS (2)
  - PSYCHIATRIC SYMPTOM [None]
  - SUICIDAL IDEATION [None]
